FAERS Safety Report 22520993 (Version 3)
Quarter: 2024Q1

REPORT INFORMATION
  Report Type: Spontaneous
  Country: US (occurrence: US)
  Receive Date: 20230605
  Receipt Date: 20240116
  Transmission Date: 20240410
  Serious: No
  Sender: FDA-Public Use
  Company Number: US-KARYOPHARM-2023KPT001321

PATIENT

DRUGS (29)
  1. XPOVIO [Suspect]
     Active Substance: SELINEXOR
     Indication: Plasma cell myeloma
     Dosage: 40 MG, 2X/WEEK
     Route: 048
     Dates: start: 20230515, end: 20230615
  2. XPOVIO [Suspect]
     Active Substance: SELINEXOR
     Dosage: 20 MG, 2X/WEEK
     Route: 048
     Dates: start: 2023
  3. ALENDRONATE [Concomitant]
     Active Substance: ALENDRONATE SODIUM
  4. AMLODIPINE [Concomitant]
     Active Substance: AMLODIPINE BESYLATE
  5. CICLOPIROX [Concomitant]
     Active Substance: CICLOPIROX\TOCOPHEROL
  6. BETAMETHASONE\CLOTRIMAZOLE [Concomitant]
     Active Substance: BETAMETHASONE\CLOTRIMAZOLE
  7. DEXAMETHASONE [Concomitant]
     Active Substance: DEXAMETHASONE
  8. DOCUSATE [Concomitant]
     Active Substance: DOCUSATE
  9. FLONASE ALLERGY RELIEF [Concomitant]
     Active Substance: FLUTICASONE PROPIONATE
  10. FUROSEMIDE [Concomitant]
     Active Substance: FUROSEMIDE
  11. GABAPENTIN [Concomitant]
     Active Substance: GABAPENTIN
  12. HYDROCODONE BITARTRATE AND ACETAMINOPHEN [Concomitant]
     Active Substance: ACETAMINOPHEN\HYDROCODONE BITARTRATE
  13. LOPERAMIDE [Concomitant]
     Active Substance: LOPERAMIDE
  14. METOLAZONE [Concomitant]
     Active Substance: METOLAZONE
  15. MONTELUKAST [Concomitant]
     Active Substance: MONTELUKAST SODIUM
  16. NAPROXEN [Concomitant]
     Active Substance: NAPROXEN
  17. NYSTATIN [Concomitant]
     Active Substance: NYSTATIN
  18. OLOPATADINE [Concomitant]
     Active Substance: OLOPATADINE
  19. OMEPRAZOLE [Concomitant]
     Active Substance: OMEPRAZOLE
  20. ONDANSETRON [Concomitant]
     Active Substance: ONDANSETRON
  21. OXYBUTYNIN [Concomitant]
     Active Substance: OXYBUTYNIN\OXYBUTYNIN CHLORIDE
  22. PROCHLORPERAZINE [Concomitant]
     Active Substance: PROCHLORPERAZINE
  23. TIMOLOL [Concomitant]
     Active Substance: TIMOLOL
  24. TORSEMIDE [Concomitant]
     Active Substance: TORSEMIDE
  25. TRAMADOL [Concomitant]
     Active Substance: TRAMADOL\TRAMADOL HYDROCHLORIDE
  26. TRAVOPROST [Concomitant]
     Active Substance: TRAVOPROST
  27. VALACYCLOVIR [Concomitant]
     Active Substance: VALACYCLOVIR HYDROCHLORIDE
  28. ATORVASTATIN [Concomitant]
     Active Substance: ATORVASTATIN
  29. POTASSIUM CHLORIDE [Concomitant]
     Active Substance: POTASSIUM CHLORIDE

REACTIONS (8)
  - Cough [Recovered/Resolved]
  - Illness [Recovering/Resolving]
  - Taste disorder [Recovered/Resolved]
  - Thyroid disorder [Unknown]
  - Asthenia [Recovering/Resolving]
  - Lower respiratory tract infection [Unknown]
  - Decreased appetite [Recovered/Resolved]
  - Pneumonia [Unknown]

NARRATIVE: CASE EVENT DATE: 20230101
